FAERS Safety Report 16003414 (Version 1)
Quarter: 2019Q1

REPORT INFORMATION
  Report Type: Spontaneous
  Country: US (occurrence: US)
  Receive Date: 20190225
  Receipt Date: 20190225
  Transmission Date: 20190418
  Serious: Yes (Hospitalization, Other)
  Sender: FDA-Public Use
  Company Number: US-TORRENT-00007703

PATIENT
  Age: 25 Year
  Sex: Female

DRUGS (7)
  1. DULOXETINE. [Suspect]
     Active Substance: DULOXETINE
     Indication: PAIN MANAGEMENT
     Dosage: UNKNOWN
  2. OXYCODONE [Suspect]
     Active Substance: OXYCODONE
     Indication: PAIN MANAGEMENT
     Dosage: 10 MG EVERY 6 HOURS
  3. HYDROMORPHONE [Suspect]
     Active Substance: HYDROMORPHONE
     Indication: PAIN MANAGEMENT
     Dosage: HYDROMORPHONE 8 MG EXTENDED RELEASE ONCE A DAY
  4. METHADONE [Suspect]
     Active Substance: METHADONE HYDROCHLORIDE
     Indication: PAIN MANAGEMENT
     Dosage: METHADONE 10 MG TWICE A DAY
  5. ACETAMINOPHEN. [Suspect]
     Active Substance: ACETAMINOPHEN
     Indication: PAIN MANAGEMENT
     Dosage: ACETAMINOPHEN 625 MG 4 TIMES A DAY
  6. DIPHENHYDRAMINE. [Suspect]
     Active Substance: DIPHENHYDRAMINE
     Indication: PAIN MANAGEMENT
     Dosage: DIPHENHYDRAMINE 25 MG 4 TIMES A DAY
  7. KETAMINE [Suspect]
     Active Substance: KETAMINE
     Indication: PAIN MANAGEMENT
     Dosage: 10MG/H KETAMINE INFUSION

REACTIONS (3)
  - Exposure during pregnancy [Unknown]
  - Pain in extremity [Unknown]
  - Preterm premature rupture of membranes [Unknown]
